FAERS Safety Report 22103690 (Version 1)
Quarter: 2023Q1

REPORT INFORMATION
  Report Type: Spontaneous
  Country: CR (occurrence: CR)
  Receive Date: 20230316
  Receipt Date: 20230316
  Transmission Date: 20230418
  Serious: Yes (Other)
  Sender: FDA-Public Use
  Company Number: CR-PFIZER INC-PV202200025976

PATIENT
  Age: 70 Year
  Sex: Female

DRUGS (6)
  1. PRISTIQ EXTENDED-RELEASE [Suspect]
     Active Substance: DESVENLAFAXINE SUCCINATE
     Dosage: 1 DF, DAILY (ONE DAILY DOSE EVERY MORNING, EVERY DAY)
  2. PRISTIQ EXTENDED-RELEASE [Suspect]
     Active Substance: DESVENLAFAXINE SUCCINATE
     Dosage: 50 MG, 1X/DAY (IN THE MORNING)
  3. VALPROATE SODIUM [Concomitant]
     Active Substance: VALPROATE SODIUM
     Indication: Bipolar disorder
     Dosage: 2 DF, DAILY (IN THE MORNING)
  4. TAFIL [ALPRAZOLAM] [Concomitant]
     Indication: Sleep disorder
     Dosage: UNK
  5. CLONIXIN\CYCLOBENZAPRINE [Concomitant]
     Active Substance: CLONIXIN\CYCLOBENZAPRINE
     Indication: Fibromyalgia
  6. DOLO-NEUROBION N [CYANOCOBALAMIN;DICLOFENAC SODIUM;PYRIDOXINE HYDROCHL [Concomitant]
     Indication: Fibromyalgia

REACTIONS (14)
  - Drug dependence [Unknown]
  - Illness [Unknown]
  - Nasopharyngitis [Unknown]
  - Malaise [Unknown]
  - Bronchitis [Unknown]
  - Abdominal discomfort [Unknown]
  - Dyspepsia [Unknown]
  - Fibromyalgia [Unknown]
  - Fatigue [Unknown]
  - Nervousness [Unknown]
  - Pain [Unknown]
  - Loss of personal independence in daily activities [Unknown]
  - Intervertebral disc protrusion [Unknown]
  - Joint dislocation [Unknown]
